FAERS Safety Report 15264405 (Version 3)
Quarter: 2018Q4

REPORT INFORMATION
  Report Type: Spontaneous
  Country: AU (occurrence: AU)
  Receive Date: 20180810
  Receipt Date: 20181101
  Transmission Date: 20190204
  Serious: Yes (Hospitalization)
  Sender: FDA-Public Use
  Company Number: AU-LPDUSPRD-20181443

PATIENT
  Age: 28 Year
  Sex: Female
  Weight: 54 kg

DRUGS (1)
  1. FERINJECT [Suspect]
     Active Substance: FERRIC CARBOXYMALTOSE
     Dosage: 1000 MG
     Route: 041
     Dates: start: 20180606, end: 2018

REACTIONS (17)
  - Dyspnoea [Unknown]
  - Gait disturbance [Not Recovered/Not Resolved]
  - Anxiety [Unknown]
  - Pyrexia [Unknown]
  - Flushing [Unknown]
  - Vomiting [Unknown]
  - Serum ferritin abnormal [Unknown]
  - Tachycardia [Unknown]
  - Heart rate increased [Unknown]
  - Arrhythmia [Unknown]
  - Nausea [Unknown]
  - Diarrhoea [Unknown]
  - Liver function test abnormal [Recovered/Resolved]
  - Depression [Unknown]
  - Paraesthesia [Unknown]
  - Asthenia [Not Recovered/Not Resolved]
  - Respiratory distress [Unknown]

NARRATIVE: CASE EVENT DATE: 2018
